FAERS Safety Report 7477832-9 (Version None)
Quarter: 2011Q2

REPORT INFORMATION
  Report Type: 
  Country: None (occurrence: None)
  Receive Date: 20110505
  Receipt Date: 20101118
  Transmission Date: 20111010
  Serious: Yes (Death)
  Sender: FDA-Public Use
  Company Number: UTC-006253

PATIENT
  Age: 43 Year
  Sex: Female

DRUGS (1)
  1. TYVASO [Suspect]
     Dosage: (30 MCG, 5 BREATHS PER SESSION), INHALATION
     Route: 055

REACTIONS (2)
  - COUGH [None]
  - HEADACHE [None]
